FAERS Safety Report 6150909-6 (Version None)
Quarter: 2009Q2

REPORT INFORMATION
  Report Type: 
  Country: None (occurrence: None)
  Receive Date: 20090408
  Receipt Date: 20090325
  Transmission Date: 20091009
  Serious: Yes (Hospitalization)
  Sender: FDA-Public Use
  Company Number: SPI200900112

PATIENT
  Sex: Female

DRUGS (1)
  1. AMITIZA [Suspect]
     Dosage: 24 MCG, TID, ORAL
     Route: 048

REACTIONS (1)
  - INTUSSUSCEPTION [None]
